FAERS Safety Report 4753039-0 (Version None)
Quarter: 2005Q3

REPORT INFORMATION
  Report Type: 
  Country: None (occurrence: None)
  Receive Date: 20050826
  Receipt Date: 20050818
  Transmission Date: 20060218
  Serious: Yes (Hospitalization)
  Sender: FDA-Public Use
  Company Number: US-MERCK-0508USA03484

PATIENT
  Sex: Male

DRUGS (2)
  1. VIOXX [Suspect]
     Indication: OSTEOARTHRITIS
     Route: 048
     Dates: start: 20000101, end: 20040901
  2. VIOXX [Suspect]
     Route: 048
     Dates: start: 20000101, end: 20040901

REACTIONS (6)
  - ANGINA PECTORIS [None]
  - DEEP VEIN THROMBOSIS [None]
  - HYPERTENSION [None]
  - POLYTRAUMATISM [None]
  - THROMBOSIS [None]
  - VENOUS INSUFFICIENCY [None]
